FAERS Safety Report 4513748-5 (Version None)
Quarter: 2004Q4

REPORT INFORMATION
  Report Type: 
  Country: None (occurrence: None)
  Receive Date: 20041124
  Receipt Date: 20041112
  Transmission Date: 20050328
  Serious: Yes (Death)
  Sender: FDA-Public Use
  Company Number: 2004-CN-00360CN

PATIENT
  Sex: 0

DRUGS (1)
  1. SPIRIVA [Suspect]
     Dosage: 18 MCG IH
     Route: 055

REACTIONS (1)
  - CARDIAC DISORDER [None]
